FAERS Safety Report 20480086 (Version 2)
Quarter: 2022Q2

REPORT INFORMATION
  Report Type: Report from Study
  Country: US (occurrence: US)
  Receive Date: 20220216
  Receipt Date: 20220415
  Transmission Date: 20220721
  Serious: Yes (Hospitalization, Other)
  Sender: FDA-Public Use
  Company Number: US-SA-2014SA125023

PATIENT
  Age: 68 Year
  Sex: Female

DRUGS (6)
  1. TERIFLUNOMIDE [Suspect]
     Active Substance: TERIFLUNOMIDE
     Indication: Multiple sclerosis
     Dosage: 14 MG,QD
     Route: 048
     Dates: start: 20140808, end: 20160201
  2. TERIFLUNOMIDE [Suspect]
     Active Substance: TERIFLUNOMIDE
     Dosage: 14 MG,QD
     Route: 048
     Dates: start: 20210429
  3. LOVASTATIN ACTAVIS [Concomitant]
     Dosage: 40 MG, QD
     Dates: end: 202201
  4. FLUTICASONE PROPIONATE [Concomitant]
     Active Substance: FLUTICASONE PROPIONATE
     Indication: Hypersensitivity
     Dosage: 50 MG, QD
  5. BRILINTA [Concomitant]
     Active Substance: TICAGRELOR
     Indication: Blood disorder
     Dosage: UNK
     Dates: start: 202201
  6. ROSUVASTATIN [Concomitant]
     Active Substance: ROSUVASTATIN
     Indication: Blood cholesterol increased
     Dosage: UNK
     Dates: start: 202201

REACTIONS (26)
  - Myocardial infarction [Unknown]
  - Atrial fibrillation [Unknown]
  - Anaemia [Not Recovered/Not Resolved]
  - Red blood cell count decreased [Not Recovered/Not Resolved]
  - Bell^s palsy [Not Recovered/Not Resolved]
  - Inflammation [Not Recovered/Not Resolved]
  - Brain injury [Not Recovered/Not Resolved]
  - Diabetes mellitus [Not Recovered/Not Resolved]
  - Peripheral nerve injury [Not Recovered/Not Resolved]
  - Intervertebral disc protrusion [Recovering/Resolving]
  - Back pain [Recovered/Resolved]
  - Sciatica [Recovering/Resolving]
  - Anxiety [Not Recovered/Not Resolved]
  - Arthritis [Not Recovered/Not Resolved]
  - Back pain [Not Recovered/Not Resolved]
  - Emphysema [Not Recovered/Not Resolved]
  - Dyspnoea [Unknown]
  - VIIth nerve injury [Not Recovered/Not Resolved]
  - Gait disturbance [Not Recovered/Not Resolved]
  - Memory impairment [Not Recovered/Not Resolved]
  - Blood cholesterol increased [Unknown]
  - Vascular cauterisation [Unknown]
  - Headache [Unknown]
  - Nausea [Unknown]
  - Hypertension [Not Recovered/Not Resolved]
  - Therapy interrupted [Unknown]

NARRATIVE: CASE EVENT DATE: 20140801
